FAERS Safety Report 4443611-X (Version None)
Quarter: 2004Q3

REPORT INFORMATION
  Report Type: 
  Country: None (occurrence: None)
  Receive Date: 20040901
  Receipt Date: 20040820
  Transmission Date: 20050211
  Serious: Yes (Other)
  Sender: FDA-Public Use
  Company Number: A0522986A

PATIENT
  Age: 73 Year
  Sex: Female

DRUGS (1)
  1. NICORETTE [Suspect]
     Indication: SMOKING CESSATION THERAPY
     Dosage: 4 MG VARIABLE DOSE TRANSBUCCAL
     Route: 002
     Dates: start: 19990101

REACTIONS (4)
  - DRUG DEPENDENCE [None]
  - DYSPNOEA [None]
  - MEDICATION ERROR [None]
  - PULMONARY HYPERTENSION [None]
